FAERS Safety Report 4302183-0 (Version None)
Quarter: 2004Q1

REPORT INFORMATION
  Report Type: 
  Country: None (occurrence: None)
  Receive Date: 20040126
  Receipt Date: 20031008
  Transmission Date: 20041129
  Serious: No
  Sender: FDA-Public Use
  Company Number: USA031049331

PATIENT
  Age: 7 Year
  Sex: Female

DRUGS (2)
  1. STRATTERA [Suspect]
     Indication: ATTENTION DEFICIT/HYPERACTIVITY DISORDER
     Dosage: 70 MG/IN THE MORNING
  2. CLONIDINE [Concomitant]

REACTIONS (2)
  - ANXIETY [None]
  - RETCHING [None]
